FAERS Safety Report 6436469-0 (Version None)
Quarter: 2009Q4

REPORT INFORMATION
  Report Type: 
  Country: None (occurrence: None)
  Receive Date: 20091110
  Receipt Date: 20080228
  Transmission Date: 20100525
  Serious: No
  Sender: FDA-Public Use
  Company Number: AEUSA200800046

PATIENT
  Age: 30 Year
  Sex: Female
  Weight: 35.2 kg

DRUGS (1)
  1. GAMUNEX [Suspect]
     Indication: SELECTIVE IGG SUBCLASS DEFICIENCY
     Dosage: 15 GM; 1X; IV
     Route: 042
     Dates: start: 20061110, end: 20080228

REACTIONS (2)
  - INFUSION RELATED REACTION [None]
  - URTICARIA [None]
